FAERS Safety Report 23067399 (Version 2)
Quarter: 2023Q4

REPORT INFORMATION
  Report Type: Spontaneous
  Country: US (occurrence: US)
  Receive Date: 20231016
  Receipt Date: 20231110
  Transmission Date: 20240109
  Serious: No
  Sender: FDA-Public Use
  Company Number: US-HETERO-HET2023US02899

PATIENT
  Age: 86 Year
  Sex: Male
  Weight: 59.42 kg

DRUGS (1)
  1. VALSARTAN [Suspect]
     Active Substance: VALSARTAN
     Indication: Blood pressure abnormal
     Dosage: 80 MILLIGRAM, ONCE A DAY
     Route: 048

REACTIONS (1)
  - Lipase increased [Unknown]

NARRATIVE: CASE EVENT DATE: 20230930
